FAERS Safety Report 20360448 (Version 4)
Quarter: 2022Q1

REPORT INFORMATION
  Report Type: Spontaneous
  Country: JP (occurrence: JP)
  Receive Date: 20220121
  Receipt Date: 20220225
  Transmission Date: 20220424
  Serious: Yes (Hospitalization, Other)
  Sender: FDA-Public Use
  Company Number: JP-BRISTOL-MYERS SQUIBB COMPANY-BMS-2022-008354

PATIENT
  Age: 73 Year
  Sex: Male

DRUGS (7)
  1. YERVOY [Suspect]
     Active Substance: IPILIMUMAB
     Indication: Non-small cell lung cancer recurrent
     Dosage: 1 MILLIGRAM/KILOGRAM
     Route: 041
     Dates: start: 20211125, end: 20211125
  2. OPDIVO [Suspect]
     Active Substance: NIVOLUMAB
     Indication: Non-small cell lung cancer recurrent
     Dosage: 360 MILLIGRAM
     Route: 041
     Dates: start: 20211125, end: 20211125
  3. OPDIVO [Suspect]
     Active Substance: NIVOLUMAB
     Dosage: 360 MILLIGRAM
     Route: 041
     Dates: start: 20211217, end: 20211217
  4. CARBOPLATIN [Suspect]
     Active Substance: CARBOPLATIN
     Indication: Non-small cell lung cancer recurrent
     Dosage: UNK
     Route: 065
     Dates: start: 20211125, end: 20211125
  5. CARBOPLATIN [Suspect]
     Active Substance: CARBOPLATIN
     Dosage: UNK
     Route: 065
     Dates: start: 20211217
  6. PEMETREXED [Suspect]
     Active Substance: PEMETREXED
     Indication: Non-small cell lung cancer
     Dosage: UNK
     Route: 065
     Dates: start: 20211125, end: 20211125
  7. PEMETREXED [Suspect]
     Active Substance: PEMETREXED
     Dosage: UNK
     Route: 065
     Dates: start: 20211217

REACTIONS (5)
  - Cellulitis [Recovering/Resolving]
  - Erythema multiforme [Unknown]
  - Skin infection [Recovering/Resolving]
  - Neutropenia [Unknown]
  - Skin disorder [Unknown]

NARRATIVE: CASE EVENT DATE: 20211218
